FAERS Safety Report 10450090 (Version 2)
Quarter: 2014Q3

REPORT INFORMATION
  Report Type: Spontaneous
  Country: GB (occurrence: GB)
  Receive Date: 20140912
  Receipt Date: 20140915
  Transmission Date: 20150326
  Serious: Yes (Death)
  Sender: FDA-Public Use
  Company Number: PHFR2014GB005973

PATIENT
  Age: 76 Year
  Sex: Female

DRUGS (3)
  1. CLOZARIL [Suspect]
     Active Substance: CLOZAPINE
     Dosage: 225 MG, QD (MANY YEARS AGO)
     Route: 048
  2. CLOZARIL [Suspect]
     Active Substance: CLOZAPINE
     Indication: SCHIZOPHRENIA
     Dosage: UNK UKN, UNK
     Route: 048
     Dates: start: 20041025
  3. CLOZARIL [Suspect]
     Active Substance: CLOZAPINE
     Dosage: UNK UKN, (DOSE DECREASED)
     Route: 048

REACTIONS (7)
  - White blood cell count increased [Recovered/Resolved]
  - Differential white blood cell count abnormal [Recovered/Resolved]
  - Metastases to liver [Fatal]
  - Jaundice [Fatal]
  - Renal failure acute [Fatal]
  - Neutrophil count increased [Recovered/Resolved]
  - Breast cancer [Fatal]

NARRATIVE: CASE EVENT DATE: 20140818
